FAERS Safety Report 20102217 (Version 1)
Quarter: 2021Q4

REPORT INFORMATION
  Report Type: Spontaneous
  Country: FR (occurrence: FR)
  Receive Date: 20211123
  Receipt Date: 20211123
  Transmission Date: 20220303
  Serious: Yes (Hospitalization)
  Sender: FDA-Public Use
  Company Number: FR-002147023-NVSC2021FR257240

PATIENT

DRUGS (3)
  1. RUXOLITINIB [Suspect]
     Active Substance: RUXOLITINIB
     Indication: Splenomegaly
     Dosage: 10 MG, BID
     Route: 065
  2. RUXOLITINIB [Suspect]
     Active Substance: RUXOLITINIB
     Indication: Myelofibrosis
     Dosage: INCREASED TO 15 MG TWICE A DAY
     Route: 065
     Dates: start: 2018
  3. RUXOLITINIB [Suspect]
     Active Substance: RUXOLITINIB
     Dosage: REDUCED TO 5 MG, BID
     Route: 065

REACTIONS (2)
  - Kaposi^s sarcoma [Not Recovered/Not Resolved]
  - Splenomegaly [Unknown]

NARRATIVE: CASE EVENT DATE: 20200401
